FAERS Safety Report 13177278 (Version 2)
Quarter: 2017Q3

REPORT INFORMATION
  Report Type: Report from Study
  Country: US (occurrence: US)
  Receive Date: 20170201
  Receipt Date: 20170731
  Transmission Date: 20171127
  Serious: No
  Sender: FDA-Public Use
  Company Number: US-EXELIXIS-CABO-16007583

PATIENT
  Age: 43 Year
  Sex: Female

DRUGS (1)
  1. CABOMETYX [Suspect]
     Active Substance: CABOZANTINIB S-MALATE
     Indication: RENAL CANCER
     Dosage: 60 MG, QD
     Route: 048
     Dates: start: 20161017, end: 20170508

REACTIONS (11)
  - Feeling abnormal [Unknown]
  - Toothache [Unknown]
  - Myalgia [Unknown]
  - Abdominal pain upper [Unknown]
  - Bone pain [Unknown]
  - Nausea [Unknown]
  - Decreased appetite [Unknown]
  - Stomatitis [Not Recovered/Not Resolved]
  - Constipation [Unknown]
  - Rash [Unknown]
  - Weight decreased [Unknown]
